FAERS Safety Report 23367058 (Version 1)
Quarter: 2024Q1

REPORT INFORMATION
  Report Type: Report from Study
  Country: US (occurrence: None)
  Receive Date: 20240104
  Receipt Date: 20240104
  Transmission Date: 20240410
  Serious: Yes (Other)
  Sender: FDA-Public Use
  Company Number: 2023A295077

PATIENT
  Sex: Female

DRUGS (1)
  1. LYNPARZA [Suspect]
     Active Substance: OLAPARIB
     Indication: Breast cancer female
     Route: 048
     Dates: start: 20230809

REACTIONS (6)
  - Blood glucose abnormal [Unknown]
  - Quality of life decreased [Unknown]
  - Fatigue [Unknown]
  - Asthenia [Unknown]
  - Product dose omission in error [Unknown]
  - Product dispensing error [Unknown]
